FAERS Safety Report 7128601-0 (Version None)
Quarter: 2010Q4

REPORT INFORMATION
  Report Type: 
  Country: None (occurrence: None)
  Receive Date: 20101130
  Receipt Date: 20101118
  Transmission Date: 20110411
  Serious: Yes (Hospitalization)
  Sender: FDA-Public Use
  Company Number: US-ROCHE-681416

PATIENT
  Age: 64 Year
  Sex: Male
  Weight: 106 kg

DRUGS (14)
  1. BEVACIZUMAB [Suspect]
     Indication: PROSTATE CANCER
     Dosage: LAST DOSE PRIOR TO SAE WAS RECEIVED ON 14 JANUARY 2010 AT A DOSE OF 1551 MG.
     Route: 042
     Dates: start: 20091019
  2. LUPRON [Suspect]
     Indication: PROSTATE CANCER
     Route: 065
     Dates: start: 20091019
  3. DOCETAXEL [Suspect]
     Indication: PROSTATE CANCER
     Route: 042
     Dates: start: 20091019
  4. CASODEX [Concomitant]
     Dates: start: 20100114
  5. PIOGLITAZONE [Concomitant]
     Dates: start: 20091027
  6. AMLODIPINE [Concomitant]
     Dates: start: 20091130
  7. ASPIRIN [Concomitant]
     Dates: start: 20070313
  8. BICALUTAMIDE [Concomitant]
     Route: 048
     Dates: start: 20100114
  9. EFFEXOR [Concomitant]
     Dates: start: 20100923
  10. GLIPIZIDE [Concomitant]
     Dates: start: 20090623
  11. LIPITOR [Concomitant]
     Dates: start: 20100715
  12. LISINOPRIL [Concomitant]
     Dates: start: 20070312
  13. LORAZEPAM [Concomitant]
     Dates: start: 20090807
  14. VIAGRA [Concomitant]
     Dates: start: 20091027

REACTIONS (1)
  - MENINGITIS ASEPTIC [None]
